FAERS Safety Report 8070532-6 (Version None)
Quarter: 2011Q4

REPORT INFORMATION
  Report Type: 
  Country: None (occurrence: None)
  Receive Date: 20111221
  Receipt Date: 20110831
  Transmission Date: 20120403
  Serious: Yes (Hospitalization)
  Sender: FDA-Public Use
  Company Number: PHEH2011US01786

PATIENT
  Sex: Female
  Weight: 80 kg

DRUGS (1)
  1. EXJADE [Suspect]
     Indication: NEOPLASM
     Dosage: 1250 MG, QD, ORAL
     Route: 048
     Dates: start: 20090519

REACTIONS (5)
  - DYSPNOEA [None]
  - FATIGUE [None]
  - ANAEMIA [None]
  - COUGH [None]
  - DIARRHOEA [None]
